FAERS Safety Report 7717129-2 (Version None)
Quarter: 2011Q3

REPORT INFORMATION
  Report Type: 
  Country: None (occurrence: None)
  Receive Date: 20110826
  Receipt Date: 20110826
  Transmission Date: 20111222
  Serious: No
  Sender: FDA-Public Use
  Company Number: None

PATIENT
  Sex: Male
  Weight: 108 kg

DRUGS (7)
  1. SIMAVASTATIN [Concomitant]
  2. CETUXIMAB [Suspect]
     Dosage: 1476 MG
     Dates: start: 20110811, end: 20110818
  3. MOTRIN [Concomitant]
  4. LISINOPRIL [Concomitant]
  5. OXYCODONE HCL [Concomitant]
  6. CISPLATIN [Suspect]
     Indication: SQUAMOUS CELL CARCINOMA
     Dosage: 170 MG
     Dates: start: 20110811, end: 20110811
  7. TAXOL [Suspect]
     Dosage: 408 MG
     Dates: start: 20110811, end: 20110818

REACTIONS (2)
  - INTRACARDIAC THROMBUS [None]
  - CHEST PAIN [None]
